FAERS Safety Report 25954287 (Version 2)
Quarter: 2025Q4

REPORT INFORMATION
  Report Type: Spontaneous
  Country: JP (occurrence: JP)
  Receive Date: 20251023
  Receipt Date: 20251223
  Transmission Date: 20260118
  Serious: Yes (Other)
  Sender: ALEXION PHARMACEUTICALS
  Company Number: JP-AstraZeneca-CH-00968887A

PATIENT
  Sex: Female

DRUGS (6)
  1. KOSELUGO [Suspect]
     Active Substance: SELUMETINIB
     Indication: Neurofibromatosis
     Dosage: 40 MILLIGRAM, BID
     Route: 061
     Dates: start: 20250929
  2. KOSELUGO [Suspect]
     Active Substance: SELUMETINIB
     Dosage: 30 MILLIGRAM, BID
     Route: 061
     Dates: start: 20251027
  3. ESCITALOPRAM [Concomitant]
     Active Substance: ESCITALOPRAM OXALATE
     Dosage: 10 MILLIGRAM,2T
     Route: 065
  4. REXULTI [Concomitant]
     Active Substance: BREXPIPRAZOLE
     Dosage: 0.5 MILLIGRAM, QD,1T
     Route: 065
  5. CLOXAZOLAM [Concomitant]
     Active Substance: CLOXAZOLAM
     Dosage: 2.2 MILLIGRAM, QD,1T
     Route: 065
  6. HERBALS [Concomitant]
     Active Substance: HERBALS
     Dosage: 7.5 GRAM/DAY, IN 3 DIVIDED DOSES
     Route: 065

REACTIONS (2)
  - Central serous chorioretinopathy [Recovered/Resolved]
  - Retinal detachment [Recovered/Resolved]

NARRATIVE: CASE EVENT DATE: 20251002
